FAERS Safety Report 19272125 (Version 4)
Quarter: 2021Q2

REPORT INFORMATION
  Report Type: Spontaneous
  Country: CL (occurrence: CL)
  Receive Date: 20210518
  Receipt Date: 20210630
  Transmission Date: 20210717
  Serious: Yes (Other)
  Sender: FDA-Public Use
  Company Number: CL-ORGANON-O2105CHL001168

PATIENT
  Sex: Female

DRUGS (3)
  1. NUVARING [Suspect]
     Active Substance: ETHINYL ESTRADIOL\ETONOGESTREL
     Dosage: 1 RING, USED FOR 2 YRS
     Route: 067
     Dates: start: 2019
  2. NUVARING [Suspect]
     Active Substance: ETHINYL ESTRADIOL\ETONOGESTREL
     Dosage: 1 RING
     Route: 067
     Dates: start: 2021, end: 2021
  3. NUVARING [Suspect]
     Active Substance: ETHINYL ESTRADIOL\ETONOGESTREL
     Dosage: 1 RING
     Route: 067
     Dates: start: 2011

REACTIONS (9)
  - Medical device site discomfort [Unknown]
  - Procedural pain [Unknown]
  - Incorrect product administration duration [Unknown]
  - Adverse event [Unknown]
  - Device breakage [Unknown]
  - Pregnancy with contraceptive device [Unknown]
  - Unintended pregnancy [Unknown]
  - Poor quality device used [Unknown]
  - Complication of device removal [Unknown]

NARRATIVE: CASE EVENT DATE: 2021
